FAERS Safety Report 8781869 (Version 1)
Quarter: 2012Q4

REPORT INFORMATION
  Report Type: 
  Country: US (occurrence: US)
  Receive Date: 20120913
  Receipt Date: 20120913
  Transmission Date: 20130627
  Serious: No
  Sender: FDA-Public Use
  Company Number: US-BIOGENIDEC-2012BI036263

PATIENT
  Age: 31 None
  Sex: Female

DRUGS (1)
  1. TYSABRI [Suspect]
     Indication: MULTIPLE SCLEROSIS
     Route: 042
     Dates: start: 20110405

REACTIONS (7)
  - Balance disorder [Recovered/Resolved]
  - Procedural pain [Recovered/Resolved]
  - Emotional disorder [Recovered/Resolved]
  - Hypoaesthesia [Recovered/Resolved]
  - Pharyngitis streptococcal [Recovered/Resolved]
  - Asthenia [Recovered/Resolved]
  - Fatigue [Recovered/Resolved]
